FAERS Safety Report 14360845 (Version 1)
Quarter: 2018Q1

REPORT INFORMATION
  Report Type: Spontaneous
  Country: US (occurrence: US)
  Receive Date: 20180107
  Receipt Date: 20180107
  Transmission Date: 20180509
  Serious: No
  Sender: FDA-Public Use
  Company Number: US-ASTRAZENECA-2018SE01208

PATIENT
  Sex: Male
  Weight: 103 kg

DRUGS (4)
  1. GLIPIZIDE. [Concomitant]
     Active Substance: GLIPIZIDE
     Indication: BLOOD GLUCOSE ABNORMAL
     Route: 048
  2. FARXIGA [Suspect]
     Active Substance: DAPAGLIFLOZIN PROPANEDIOL
     Indication: TYPE 2 DIABETES MELLITUS
     Route: 048
     Dates: start: 2014
  3. NATEGLINIDE. [Concomitant]
     Active Substance: NATEGLINIDE
     Indication: BLOOD GLUCOSE ABNORMAL
     Route: 048
  4. METFORMIN [Concomitant]
     Active Substance: METFORMIN HYDROCHLORIDE
     Indication: BLOOD GLUCOSE ABNORMAL
     Route: 048

REACTIONS (4)
  - Drug dose omission [Unknown]
  - Wrong drug administered [Unknown]
  - Weight decreased [Unknown]
  - Expired product administered [Unknown]
